FAERS Safety Report 5227565-4 (Version None)
Quarter: 2007Q1

REPORT INFORMATION
  Report Type: 
  Country: None (occurrence: None)
  Receive Date: 20061201
  Receipt Date: 20061004
  Transmission Date: 20070707
  Serious: No
  Sender: FDA-Public Use
  Company Number: US200610000856

PATIENT

DRUGS (3)
  1. CYMBALTA [Suspect]
     Indication: DEPRESSION
     Dosage: 30 MG, ORAL
     Route: 048
     Dates: start: 20060928
  2. TOPROL-XL [Concomitant]
  3. SYNTHROID [Concomitant]

REACTIONS (1)
  - BLOOD PRESSURE DECREASED [None]
